FAERS Safety Report 9304213 (Version 1)
Quarter: 2013Q2

REPORT INFORMATION
  Report Type: Spontaneous
  Country: US (occurrence: US)
  Receive Date: 20130522
  Receipt Date: 20130522
  Transmission Date: 20140414
  Serious: No
  Sender: FDA-Public Use
  Company Number: US-009507513-1305USA010585

PATIENT
  Age: 53 Year
  Sex: Female

DRUGS (4)
  1. SAPHRIS [Suspect]
     Dosage: 5 MG, BID
     Route: 060
     Dates: start: 201302, end: 20130327
  2. VIIBRYD [Concomitant]
  3. TEMAZEPAM [Concomitant]
  4. ALPRAZOLAM [Concomitant]

REACTIONS (3)
  - Hypoaesthesia oral [Unknown]
  - Weight increased [Unknown]
  - Oral disorder [Unknown]
